FAERS Safety Report 8459128-1 (Version None)
Quarter: 2012Q2

REPORT INFORMATION
  Report Type: 
  Country: None (occurrence: None)
  Receive Date: 20120622
  Receipt Date: 20120618
  Transmission Date: 20120825
  Serious: Yes (Hospitalization)
  Sender: FDA-Public Use
  Company Number: US-ROCHE-1079417

PATIENT
  Sex: Male

DRUGS (2)
  1. VALCYTE [Suspect]
     Indication: CYTOMEGALOVIRUS CHORIORETINITIS
     Route: 048
  2. CELLCEPT [Suspect]
     Indication: CYTOMEGALOVIRUS CHORIORETINITIS

REACTIONS (2)
  - DIARRHOEA [None]
  - CYTOMEGALOVIRUS CHORIORETINITIS [None]
